FAERS Safety Report 5017897-7 (Version None)
Quarter: 2006Q2

REPORT INFORMATION
  Report Type: 
  Country: None (occurrence: None)
  Receive Date: 20060602
  Receipt Date: 20060602
  Transmission Date: 20061013
  Serious: Yes (Hospitalization)
  Sender: FDA-Public Use
  Company Number: None

PATIENT
  Age: 54 Year
  Sex: Male
  Weight: 86.1834 kg

DRUGS (8)
  1. PACLITAXEL [Suspect]
     Indication: NON-SMALL CELL LUNG CANCER
     Dosage: 105MG IV WEEKLY X 6.
     Route: 042
     Dates: start: 20060509, end: 20060530
  2. CARBOPLATIN [Suspect]
     Indication: NON-SMALL CELL LUNG CANCER
     Dosage: 308MG IV WEEKLY X 6.
     Route: 042
     Dates: start: 20060509, end: 20060530
  3. TYLENOL (CAPLET) [Concomitant]
  4. COUGH SYRUP, OVER THE COUNTER [Concomitant]
  5. COMPAZINE [Concomitant]
  6. ZOFRAN [Concomitant]
  7. DURAGESIC-100 [Concomitant]
  8. PERCOCET [Concomitant]

REACTIONS (3)
  - DEHYDRATION [None]
  - DYSPHAGIA [None]
  - OESOPHAGEAL DISORDER [None]
